FAERS Safety Report 8911141 (Version 1)
Quarter: 2012Q4

REPORT INFORMATION
  Report Type: 
  Country: US (occurrence: US)
  Receive Date: 20121116
  Receipt Date: 20121116
  Transmission Date: 20130627
  Serious: No
  Sender: FDA-Public Use
  Company Number: US-GLAXOSMITHKLINE-A0986567A

PATIENT
  Age: 50 Year
  Sex: Female

DRUGS (4)
  1. VOTRIENT [Suspect]
     Indication: PRODUCT USED FOR UNKNOWN INDICATION
     Dosage: 4TAB Per day
     Route: 048
     Dates: start: 20120420
  2. OXYCODONE [Concomitant]
  3. MORPHINE SULFATE [Concomitant]
  4. MIRTAZAPINE [Concomitant]

REACTIONS (4)
  - Diarrhoea [Recovered/Resolved]
  - Fatigue [Unknown]
  - Dyspnoea [Unknown]
  - Abdominal pain [Unknown]
